FAERS Safety Report 7214751-7 (Version None)
Quarter: 2011Q1

REPORT INFORMATION
  Report Type: 
  Country: None (occurrence: None)
  Receive Date: 20110107
  Receipt Date: 20100129
  Transmission Date: 20110831
  Serious: No
  Sender: FDA-Public Use
  Company Number: A0841231A

PATIENT
  Age: 50 Year
  Sex: Female

DRUGS (6)
  1. LEVOTHYROXINE [Concomitant]
     Route: 048
  2. LOVAZA [Suspect]
     Dosage: 2CAP TWICE PER DAY
     Route: 048
     Dates: start: 20100116, end: 20100121
  3. LANTUS [Concomitant]
     Dosage: 20UNIT PER DAY
  4. LISINOPRIL [Concomitant]
  5. GLIPIZIDE [Concomitant]
  6. METFORMIN [Concomitant]
     Route: 048

REACTIONS (1)
  - SOMNOLENCE [None]
